FAERS Safety Report 9616324 (Version 1)
Quarter: 2013Q4

REPORT INFORMATION
  Report Type: Spontaneous
  Country: FR (occurrence: FR)
  Receive Date: 20131011
  Receipt Date: 20131011
  Transmission Date: 20140711
  Serious: Yes (Hospitalization, Disabling)
  Sender: FDA-Public Use
  Company Number: FR-PFIZER INC-FR-WYE-H07871509

PATIENT
  Age: 68 Year
  Sex: Male

DRUGS (22)
  1. CORDARONE [Suspect]
     Indication: ACUTE PULMONARY OEDEMA
     Dosage: 200 MG, DAILY
     Route: 048
     Dates: start: 20060117, end: 20081030
  2. ARACYTINE [Suspect]
     Indication: ACUTE MYELOID LEUKAEMIA
     Dosage: 7 CYCLES
     Route: 042
     Dates: start: 20060117
  3. ARACYTINE [Suspect]
     Dosage: 4 CYCLES, HIGH DOSE
     Route: 042
     Dates: start: 20060310
  4. ARACYTINE [Suspect]
     Dosage: 3 CYCLES
     Route: 042
     Dates: start: 20061214
  5. ARACYTINE [Suspect]
     Dosage: 5 CYCLES, HIGH DOSE
     Route: 042
     Dates: start: 20080306
  6. ARACYTINE [Suspect]
     Dosage: 5 CYCLES
     Route: 042
     Dates: start: 20080416
  7. ARACYTINE [Suspect]
     Dosage: 5 CYCLES
     Route: 042
     Dates: start: 20080523
  8. ARACYTINE [Suspect]
     Dosage: 5 CYCLES
     Route: 042
     Dates: start: 20080708
  9. ARACYTINE [Suspect]
     Dosage: HIGH DOSE, CYCLIC
     Route: 042
     Dates: start: 20081013, end: 20081016
  10. EVOLTRA [Suspect]
     Indication: ACUTE MYELOID LEUKAEMIA
     Dosage: 5 CYCLES
     Route: 042
     Dates: start: 20080306
  11. EVOLTRA [Suspect]
     Dosage: 7 CYCLES
     Route: 042
     Dates: start: 20080824, end: 20080830
  12. TAHOR [Concomitant]
     Indication: DYSLIPIDAEMIA
     Route: 048
  13. RENITEC [Concomitant]
     Indication: ACUTE PULMONARY OEDEMA
     Dosage: UNK
     Route: 048
     Dates: start: 20060117, end: 20081030
  14. FLUDARA [Concomitant]
     Indication: ACUTE MYELOID LEUKAEMIA
     Dosage: 5 CYCLES
     Route: 042
     Dates: start: 20070904
  15. FLUDARA [Concomitant]
     Dosage: 5 CYCLES
     Route: 042
     Dates: start: 20080904, end: 20080908
  16. FOLIC ACID [Concomitant]
  17. PURINETHOL [Concomitant]
     Dosage: 1 DF, DAILY
     Route: 048
     Dates: start: 200704, end: 200708
  18. PURINETHOL [Concomitant]
     Dosage: 1 DF, DAILY
     Dates: start: 20081022, end: 20081031
  19. METHOTREXATE [Concomitant]
     Dosage: 10 MG, WEEKLY
     Route: 048
     Dates: start: 200704, end: 200708
  20. SULFAMETHOXAZOLE W/TRIMETHOPRIM [Concomitant]
  21. VALACICLOVIR [Concomitant]
  22. VEPESIDE [Concomitant]
     Indication: ACUTE MYELOID LEUKAEMIA

REACTIONS (1)
  - Axonal neuropathy [Recovering/Resolving]
